FAERS Safety Report 8571681-6 (Version None)
Quarter: 2012Q3

REPORT INFORMATION
  Report Type: 
  Country: None (occurrence: None)
  Receive Date: 20120806
  Receipt Date: 20111117
  Transmission Date: 20120928
  Serious: No
  Sender: FDA-Public Use
  Company Number: US-009507513-2011SP055437

PATIENT

DRUGS (1)
  1. SOLARCAINE [Suspect]
     Indication: THERMAL BURN
     Dosage: UNK UNK, UNKNOWN
     Route: 061

REACTIONS (2)
  - SCAR [None]
  - CONDITION AGGRAVATED [None]
